FAERS Safety Report 6370796-0 (Version None)
Quarter: 2009Q3

REPORT INFORMATION
  Report Type: 
  Country: None (occurrence: None)
  Receive Date: 20090923
  Receipt Date: 20070427
  Transmission Date: 20100115
  Serious: Yes (Other)
  Sender: FDA-Public Use
  Company Number: US-ASTRAZENECA-2006UW23788

PATIENT
  Age: 18741 Day
  Sex: Male
  Weight: 103 kg

DRUGS (7)
  1. SEROQUEL [Suspect]
     Indication: MENTAL DISORDER
     Route: 048
     Dates: start: 19990215, end: 19990101
  2. TRILAFON [Concomitant]
  3. ABILIFY [Concomitant]
  4. RISPERDAL [Concomitant]
     Dates: start: 20020101, end: 20050101
  5. ZYPREXA [Concomitant]
     Dates: start: 19990801, end: 20030801
  6. HUMULIN N [Concomitant]
     Dosage: 10-20 UNITS
     Dates: start: 20000522
  7. LAMISIL [Concomitant]
     Dates: start: 20000522

REACTIONS (4)
  - DIABETES MELLITUS INADEQUATE CONTROL [None]
  - PANCREATITIS [None]
  - TYPE 1 DIABETES MELLITUS [None]
  - TYPE 2 DIABETES MELLITUS [None]
